FAERS Safety Report 5820956-X (Version None)
Quarter: 2008Q3

REPORT INFORMATION
  Report Type: 
  Country: None (occurrence: None)
  Receive Date: 20080724
  Receipt Date: 20080715
  Transmission Date: 20090109
  Serious: Yes (Other)
  Sender: FDA-Public Use
  Company Number: US-WYE-H05055708

PATIENT
  Age: 34 Year
  Sex: Male

DRUGS (7)
  1. PHENERGAN HCL [Suspect]
     Dosage: UNKNOWN
  2. XANAX [Suspect]
     Dosage: LARGE DOSES APPROXIMATELY 4-6 MG
  3. TRAZODONE HCL [Suspect]
     Dosage: 70 TO 150 MG DAILY
  4. ZOLOFT [Suspect]
  5. CYMBALTA [Suspect]
     Dosage: UNKNOWN
  6. AMBIEN [Suspect]
  7. ETHANOL [Suspect]
     Dosage: 6 TO 8 DRINKS OVER A FORTY MINUTE PERIOD

REACTIONS (5)
  - AMNESIA [None]
  - DRUG ABUSE [None]
  - IMPRISONMENT [None]
  - SLEEP SEX [None]
  - SLEEP-RELATED EATING DISORDER [None]
